FAERS Safety Report 18602469 (Version 1)
Quarter: 2020Q4

REPORT INFORMATION
  Report Type: Spontaneous
  Country: US (occurrence: US)
  Receive Date: 20201210
  Receipt Date: 20201210
  Transmission Date: 20210114
  Serious: No
  Sender: FDA-Public Use
  Company Number: US-PERRIGO-20US012393

PATIENT
  Age: 51 Year
  Sex: Female
  Weight: 71.66 kg

DRUGS (5)
  1. ALBUTEROL SULFATE. [Suspect]
     Active Substance: ALBUTEROL SULFATE
     Indication: ASTHMA
     Dosage: 90 TO 180 MCG, 2 TO 3 TIMES DAILY PRN
     Route: 055
     Dates: start: 202007
  2. PREDNISONE. [Concomitant]
     Active Substance: PREDNISONE
     Indication: PERENNIAL ALLERGY
     Dosage: UNK
     Route: 065
     Dates: start: 202007, end: 202007
  3. ALBUTEROL SULFATE. [Suspect]
     Active Substance: ALBUTEROL SULFATE
     Dosage: 90 TO 180 MCG, 2 TO 3 TIMES DAILY PRN
     Route: 055
     Dates: start: 202005, end: 202007
  4. ALBUTEROL SULFATE. [Concomitant]
     Active Substance: ALBUTEROL SULFATE
     Indication: ASTHMA
     Dosage: NEBULIZER, PRN
     Route: 055
  5. TYLENOL [Concomitant]
     Active Substance: ACETAMINOPHEN
     Indication: PAIN
     Dosage: PRN
     Route: 065

REACTIONS (2)
  - Pulmonary pain [Unknown]
  - Drug administered in wrong device [Recovered/Resolved]

NARRATIVE: CASE EVENT DATE: 202005
